FAERS Safety Report 4372403-5 (Version None)
Quarter: 2004Q2

REPORT INFORMATION
  Report Type: 
  Country: None (occurrence: None)
  Receive Date: 20040526
  Receipt Date: 20040513
  Transmission Date: 20050107
  Serious: Yes (Death)
  Sender: FDA-Public Use
  Company Number: FR-JNJFOC-20040502798

PATIENT
  Age: 6 Month
  Sex: Female

DRUGS (1)
  1. PROPULSID [Suspect]
     Indication: GASTROOESOPHAGEAL REFLUX DISEASE
     Dosage: 0.8 MG, 4 IN 1 DAY, ORAL
     Route: 048
     Dates: end: 20031220

REACTIONS (2)
  - BRONCHOPULMONARY DYSPLASIA [None]
  - SUPERINFECTION [None]
